FAERS Safety Report 5263061-6 (Version None)
Quarter: 2007Q1

REPORT INFORMATION
  Report Type: 
  Country: None (occurrence: None)
  Receive Date: 20070312
  Receipt Date: 20070228
  Transmission Date: 20070707
  Serious: Yes (Other)
  Sender: FDA-Public Use
  Company Number: JP-PFIZER INC-2007017347

PATIENT
  Sex: Female

DRUGS (7)
  1. ZYRTEC [Suspect]
     Indication: ECZEMA
     Dosage: DAILY DOSE:10MG
     Route: 048
     Dates: start: 20060401, end: 20070201
  2. PRAVASTATIN SODIUM [Concomitant]
     Route: 048
  3. ALFACALCIDOL [Concomitant]
     Route: 048
  4. CALCIUM LACTATE [Concomitant]
     Route: 048
  5. DIPYRIDAMOLE [Concomitant]
     Route: 048
  6. RANITIDINE HYDROCHLORIDE [Concomitant]
  7. PROCTOSEDYL ^ROUSSEL^ [Concomitant]

REACTIONS (1)
  - BRADYCARDIA [None]
